FAERS Safety Report 17105926 (Version 3)
Quarter: 2019Q4

REPORT INFORMATION
  Report Type: Spontaneous
  Country: CA (occurrence: CA)
  Receive Date: 20191203
  Receipt Date: 20191210
  Transmission Date: 20200122
  Serious: Yes (Other)
  Sender: FDA-Public Use
  Company Number: CA-PFIZER INC-2019360651

PATIENT
  Age: 75 Year
  Sex: Female
  Weight: 56.69 kg

DRUGS (1)
  1. XALATAN [Suspect]
     Active Substance: LATANOPROST
     Indication: GLAUCOMA
     Dosage: 1 DROP 1X/DAY OS
     Route: 047
     Dates: start: 20190811, end: 20190815

REACTIONS (7)
  - Eye infection [Recovered/Resolved]
  - Product quality issue [Recovered/Resolved]
  - Eyelid margin crusting [Recovered/Resolved]
  - Lacrimation disorder [Recovered/Resolved]
  - Conjunctivitis [Recovered/Resolved]
  - Eye irritation [Recovered/Resolved]
  - Eye discharge [Recovered/Resolved]

NARRATIVE: CASE EVENT DATE: 201908
